FAERS Safety Report 25907258 (Version 2)
Quarter: 2025Q4

REPORT INFORMATION
  Report Type: Spontaneous
  Country: US (occurrence: US)
  Receive Date: 20251010
  Receipt Date: 20251031
  Transmission Date: 20260117
  Serious: Yes (Other)
  Sender: BOTANIX PHARMACEUTICALS
  Company Number: US-BOTANIX PHARMACEUTICALS-2025BOT00310

PATIENT
  Age: 18 Year
  Sex: Female
  Weight: 56.699 kg

DRUGS (1)
  1. SOFDRA [Suspect]
     Active Substance: SOFPIRONIUM BROMIDE
     Indication: Hyperhidrosis
     Dosage: APPLIED TO DRY SKIN, TO BOTH AXILLA IN THE MORNING USING THE APPLICATOR
     Route: 061
     Dates: start: 20250922, end: 20250922

REACTIONS (6)
  - Angioedema [Recovered/Resolved]
  - Periorbital oedema [Recovered/Resolved]
  - Urticaria [Recovered/Resolved]
  - Erythema [Unknown]
  - Dry mouth [Recovering/Resolving]
  - Vision blurred [Not Recovered/Not Resolved]

NARRATIVE: CASE EVENT DATE: 20250922
